FAERS Safety Report 9669526 (Version 1)
Quarter: 2013Q4

REPORT INFORMATION
  Report Type: Spontaneous
  Country: US (occurrence: US)
  Receive Date: 20131105
  Receipt Date: 20131105
  Transmission Date: 20140711
  Serious: No
  Sender: FDA-Public Use
  Company Number: US-PFIZER INC-2013310588

PATIENT
  Age: 76 Year
  Sex: Female

DRUGS (16)
  1. FELDENE [Suspect]
     Dosage: UNK
  2. NEOSPORIN [Suspect]
     Dosage: UNK
  3. CIPROFLOXACIN [Suspect]
     Dosage: UNK
  4. DOXYCYCLINE HYCLATE [Suspect]
     Dosage: UNK
  5. LEVOFLOXACIN [Suspect]
     Dosage: UNK
  6. TRIMETHOPRIM [Suspect]
     Dosage: UNK
  7. DMSO BLADDER INSTILATION [Suspect]
     Dosage: UNK
  8. CYMBALTA [Suspect]
     Dosage: UNK
  9. PNEUMODORON [Suspect]
     Dosage: UNK
  10. LORTAB [Suspect]
     Dosage: UNK
  11. TRILEPTAL [Suspect]
     Dosage: UNK
  12. TYLOX [Suspect]
     Dosage: UNK
  13. PENATEN [Suspect]
     Dosage: UNK
  14. PNEUMOVAX 23 [Suspect]
     Dosage: UNK
  15. MERTHIOLATE [Suspect]
     Dosage: UNK
  16. VANCOCIN HYDROCHLORIDE [Suspect]
     Dosage: UNK

REACTIONS (1)
  - Drug hypersensitivity [Unknown]
